FAERS Safety Report 14312286 (Version 1)
Quarter: 2017Q4

REPORT INFORMATION
  Report Type: Spontaneous
  Country: US (occurrence: US)
  Receive Date: 20171221
  Receipt Date: 20171221
  Transmission Date: 20180321
  Serious: Yes (Death, Hospitalization, Other)
  Sender: FDA-Public Use
  Company Number: US-ROCHE-2040597

PATIENT
  Sex: Female

DRUGS (1)
  1. TECENTRIQ [Suspect]
     Active Substance: ATEZOLIZUMAB
     Indication: URETERIC CANCER
     Route: 065

REACTIONS (6)
  - Fatigue [Unknown]
  - Malaise [Unknown]
  - Hepatic neoplasm [Unknown]
  - Fall [Unknown]
  - Death [Fatal]
  - Yellow skin [Unknown]

NARRATIVE: CASE EVENT DATE: 20170603
